FAERS Safety Report 7064363-3 (Version None)
Quarter: 2010Q4

REPORT INFORMATION
  Report Type: 
  Country: None (occurrence: None)
  Receive Date: 20101027
  Receipt Date: 20101018
  Transmission Date: 20110411
  Serious: Yes (Hospitalization, Disabling)
  Sender: FDA-Public Use
  Company Number: GB-ASTRAZENECA-2010SE49216

PATIENT
  Age: 63 Year
  Sex: Male
  Weight: 70 kg

DRUGS (5)
  1. OMEPRAZOLE [Suspect]
     Indication: DYSPEPSIA
     Route: 048
  2. LACTULOSE [Concomitant]
  3. SPIRONOLACTONE [Concomitant]
  4. THIAMINE HCL [Concomitant]
  5. VITAMIN B COMPLEX CAP [Concomitant]

REACTIONS (5)
  - ASTHENIA [None]
  - CONFUSIONAL STATE [None]
  - HEADACHE [None]
  - HYPONATRAEMIA [None]
  - LETHARGY [None]
